FAERS Safety Report 12883839 (Version 1)
Quarter: 2016Q4

REPORT INFORMATION
  Report Type: Spontaneous
  Country: DK (occurrence: DK)
  Receive Date: 20161026
  Receipt Date: 20161026
  Transmission Date: 20170207
  Serious: Yes (Hospitalization)
  Sender: FDA-Public Use
  Company Number: DK-TEVA-702986ACC

PATIENT
  Age: 63 Year
  Sex: Male

DRUGS (2)
  1. MORPHINE [Concomitant]
     Active Substance: MORPHINE
     Indication: PAIN
     Dates: start: 20150912
  2. MALFIN [Suspect]
     Active Substance: MORPHINE SULFATE
     Indication: PAIN
     Route: 048
     Dates: start: 20150912

REACTIONS (19)
  - Hyporeflexia [Recovered/Resolved]
  - Dysphonia [Not Recovered/Not Resolved]
  - Balance disorder [Not Recovered/Not Resolved]
  - Confusional state [Recovered/Resolved]
  - Incontinence [Not Recovered/Not Resolved]
  - Incorrect product formulation administered [Recovered/Resolved]
  - Pyrexia [Unknown]
  - Blood creatinine increased [Unknown]
  - Somnolence [Recovered/Resolved]
  - Sedation [Unknown]
  - Gait disturbance [Not Recovered/Not Resolved]
  - Malaise [Recovered/Resolved]
  - Depressed level of consciousness [Recovered/Resolved]
  - Infection [Unknown]
  - Stroke in evolution [Unknown]
  - Lethargy [Unknown]
  - Toxicity to various agents [Recovered/Resolved]
  - Vomiting [Recovered/Resolved]
  - Dyspnoea [Recovered/Resolved]

NARRATIVE: CASE EVENT DATE: 201509
